FAERS Safety Report 12900067 (Version 2)
Quarter: 2016Q4

REPORT INFORMATION
  Report Type: Report from Study
  Country: US (occurrence: US)
  Receive Date: 20161101
  Receipt Date: 20161108
  Transmission Date: 20170207
  Serious: Yes (Hospitalization, Other)
  Sender: FDA-Public Use
  Company Number: US-EISAI MEDICAL RESEARCH-EC-2016-021596

PATIENT
  Age: 63 Year
  Sex: Male
  Weight: 88.8 kg

DRUGS (9)
  1. LEVITRA [Concomitant]
     Active Substance: VARDENAFIL HYDROCHLORIDE TRIHYDRATE
     Route: 048
     Dates: start: 2014
  2. LORCASERIN [Suspect]
     Active Substance: LORCASERIN HYDROCHLORIDE
     Indication: WEIGHT CONTROL
     Route: 048
     Dates: start: 20140828, end: 20141126
  3. ATROVENT HFA [Concomitant]
     Active Substance: IPRATROPIUM BROMIDE
     Route: 050
     Dates: start: 2011
  4. LOSARTAN-HYDROCLOROTHIAZIDE [Concomitant]
     Route: 048
     Dates: start: 20140430
  5. AMLODIPINE [Concomitant]
     Active Substance: AMLODIPINE BESYLATE
     Route: 048
     Dates: start: 2011
  6. ASPIRIN. [Concomitant]
     Active Substance: ASPIRIN
     Route: 048
     Dates: start: 2005
  7. DIAZEPAM. [Concomitant]
     Active Substance: DIAZEPAM
     Route: 048
     Dates: start: 2011
  8. RAPAFLO [Concomitant]
     Active Substance: SILODOSIN
     Route: 048
     Dates: start: 20140120
  9. SIMVASTATIN. [Concomitant]
     Active Substance: SIMVASTATIN
     Route: 048
     Dates: start: 20140427

REACTIONS (6)
  - Intermittent claudication [Recovered/Resolved]
  - Poisoning [Recovered/Resolved]
  - Agitation [Recovered/Resolved]
  - Spousal abuse [Recovered/Resolved]
  - Cardiomyopathy [Recovered/Resolved]
  - Myelomalacia [Recovered/Resolved]

NARRATIVE: CASE EVENT DATE: 2014
